FAERS Safety Report 6369331-2 (Version None)
Quarter: 2009Q3

REPORT INFORMATION
  Report Type: 
  Country: None (occurrence: None)
  Receive Date: 20090916
  Receipt Date: 20090904
  Transmission Date: 20100115
  Serious: Yes (Hospitalization)
  Sender: FDA-Public Use
  Company Number: 2009EU003448

PATIENT
  Age: 55 Year
  Sex: Female

DRUGS (16)
  1. TACROLIMUS [Suspect]
     Indication: RENAL TRANSPLANT
     Dosage: 2 MG, BID, ORAL; 1 MG, BID;
     Route: 048
     Dates: start: 20061001, end: 20090703
  2. TACROLIMUS [Suspect]
     Indication: RENAL TRANSPLANT
     Dosage: 2 MG, BID, ORAL; 1 MG, BID;
     Route: 048
     Dates: start: 20090714
  3. MIMPARA(CINACALCET) [Suspect]
     Indication: CALCIPHYLAXIS
     Dosage: 30 MG, UID/QD, ORAL
     Route: 048
     Dates: start: 20090602, end: 20090703
  4. ALFACALCIDOL (ALFACALCIDOL) [Concomitant]
  5. ALLOPURINOL [Concomitant]
  6. ARANESP [Concomitant]
  7. CLOPIDOGREL [Concomitant]
  8. FERROUS SULFATE TAB [Concomitant]
  9. FRAGMIN [Concomitant]
  10. FUROSEMIDE [Concomitant]
  11. OMEPRAZOLE [Concomitant]
  12. PARACETAMOL [Concomitant]
  13. PERINDOPRIL ERBUMINE [Concomitant]
  14. PREDNISOLONE [Concomitant]
  15. RANITIDINE [Concomitant]
  16. SODIUM BICARBONATE IN PLASTIC CONTAINER [Concomitant]

REACTIONS (16)
  - ABDOMINAL HERNIA [None]
  - ASTHENIA [None]
  - BLOOD CREATININE INCREASED [None]
  - BLOOD UREA INCREASED [None]
  - CYTOMEGALOVIRUS INFECTION [None]
  - DRUG LEVEL INCREASED [None]
  - HAEMORRHAGE [None]
  - HEPATIC CYST [None]
  - INTERNATIONAL NORMALISED RATIO INCREASED [None]
  - JAUNDICE CHOLESTATIC [None]
  - LIVER FUNCTION TEST ABNORMAL [None]
  - MENORRHAGIA [None]
  - PERITONITIS SCLEROSING [None]
  - PLEURAL EFFUSION [None]
  - TREMOR [None]
  - WHITE BLOOD CELL COUNT INCREASED [None]
